FAERS Safety Report 8593847 (Version 2)
Quarter: 2013Q2

REPORT INFORMATION
  Report Type: Spontaneous
  Country: US (occurrence: US)
  Receive Date: 20120604
  Receipt Date: 20130617
  Transmission Date: 20140414
  Serious: Yes (Hospitalization, Disabling)
  Sender: FDA-Public Use
  Company Number: US-ASTRAZENECA-2012SE35033

PATIENT
  Age: 33 Year
  Sex: Female
  Weight: 113.4 kg

DRUGS (14)
  1. NEXIUM [Suspect]
     Indication: GASTROOESOPHAGEAL REFLUX DISEASE
     Dosage: ONE TO TWO DAILY
     Route: 048
     Dates: start: 2003
  2. NEXIUM [Suspect]
     Indication: GASTROOESOPHAGEAL REFLUX DISEASE
     Route: 048
     Dates: start: 20030910
  3. PREVACID [Concomitant]
     Dates: start: 2003
  4. ACIPHEX [Concomitant]
     Dates: start: 2003
  5. AMBIEN [Concomitant]
     Dates: start: 2003
  6. PAXIL [Concomitant]
     Dates: start: 20030527
  7. ZYPREXA [Concomitant]
     Dates: start: 20030415
  8. ABILIFY [Concomitant]
  9. ACCOLATE [Concomitant]
     Dates: start: 20031117
  10. LUNESTA [Concomitant]
  11. DIGOXIN [Concomitant]
  12. WELLBUTRIN [Concomitant]
  13. CYMBALTA [Concomitant]
  14. COUMADIN [Concomitant]

REACTIONS (12)
  - Schizophrenia, paranoid type [Unknown]
  - Myocardial infarction [Unknown]
  - Aortic valve stenosis [Unknown]
  - Vertigo [Unknown]
  - Gastric disorder [Unknown]
  - Depression [Unknown]
  - Back pain [Unknown]
  - Osteoporosis [Unknown]
  - Angina pectoris [Unknown]
  - Multiple fractures [Unknown]
  - Anxiety [Unknown]
  - Panic attack [Unknown]
